FAERS Safety Report 21590884 (Version 1)
Quarter: 2022Q4

REPORT INFORMATION
  Report Type: Spontaneous
  Country: US (occurrence: US)
  Receive Date: 20221114
  Receipt Date: 20221114
  Transmission Date: 20230113
  Serious: No
  Sender: FDA-Public Use
  Company Number: US-ORGANON-O2211USA000226

PATIENT
  Age: 17 Year
  Sex: Female
  Weight: 68 kg

DRUGS (2)
  1. NEXPLANON [Suspect]
     Active Substance: ETONOGESTREL
     Indication: Contraception
     Dosage: 1 ROD FOR 3 YEARS IN THE LEFT ARM
     Route: 059
     Dates: start: 20210907
  2. NEXPLANON [Suspect]
     Active Substance: ETONOGESTREL
     Indication: Menstrual cycle management

REACTIONS (4)
  - Implant site pruritus [Unknown]
  - Pain in extremity [Unknown]
  - Heavy menstrual bleeding [Not Recovered/Not Resolved]
  - Dysmenorrhoea [Not Recovered/Not Resolved]

NARRATIVE: CASE EVENT DATE: 20220701
